FAERS Safety Report 7897228-5 (Version None)
Quarter: 2011Q4

REPORT INFORMATION
  Report Type: 
  Country: None (occurrence: None)
  Receive Date: 20111107
  Receipt Date: 20111027
  Transmission Date: 20120403
  Serious: No
  Sender: FDA-Public Use
  Company Number: US-ELI_LILLY_AND_COMPANY-US201108006402

PATIENT
  Age: 64 Year
  Sex: Female

DRUGS (3)
  1. HUMULIN R [Suspect]
     Indication: DIABETES MELLITUS
     Dosage: UNK, UNKNOWN
     Route: 065
  2. HUMULIN N [Suspect]
     Dosage: 50 U, BID
     Route: 065
  3. HUMULIN N [Suspect]
     Indication: DIABETES MELLITUS
     Dosage: 50 U, BID
     Route: 065

REACTIONS (3)
  - CATARACT [None]
  - NAUSEA [None]
  - VOMITING [None]
